FAERS Safety Report 16003444 (Version 1)
Quarter: 2019Q1

REPORT INFORMATION
  Report Type: Spontaneous
  Country: AU (occurrence: AU)
  Receive Date: 20190226
  Receipt Date: 20190226
  Transmission Date: 20190418
  Serious: Yes (Other)
  Sender: FDA-Public Use
  Company Number: AU-TEVA-2019-AU-1015540

PATIENT
  Age: 68 Year
  Sex: Male

DRUGS (29)
  1. FUROSEMIDE. [Concomitant]
     Active Substance: FUROSEMIDE
  2. AMITRIPTYLINE [Concomitant]
     Active Substance: AMITRIPTYLINE
  3. IMATINIB. [Suspect]
     Active Substance: IMATINIB MESYLATE
     Dosage: DOSAGE UNKNOWN
     Route: 065
  4. FLECAINIDE ACETATE. [Concomitant]
     Active Substance: FLECAINIDE ACETATE
  5. MAGNESIUM [Concomitant]
     Active Substance: MAGNESIUM
  6. DURO-K [Concomitant]
     Active Substance: POTASSIUM CHLORIDE
  7. DASATINIB. [Suspect]
     Active Substance: DASATINIB
     Route: 065
  8. NILOTINIB [Suspect]
     Active Substance: NILOTINIB
     Route: 065
  9. BISOPROLOL [Concomitant]
     Active Substance: BISOPROLOL
  10. PHENOXYMETHYLPENICILLIN [Concomitant]
     Active Substance: PENICILLIN V
  11. PERDNISOLONE [Concomitant]
  12. TARGIN [Concomitant]
     Active Substance: NALOXONE HYDROCHLORIDE\OXYCODONE HYDROCHLORIDE
  13. ALDACTONE [Concomitant]
     Active Substance: SPIRONOLACTONE
  14. LASIX [Concomitant]
     Active Substance: FUROSEMIDE
  15. SIMVASTATIN. [Concomitant]
     Active Substance: SIMVASTATIN
  16. ASPIRIN. [Concomitant]
     Active Substance: ASPIRIN
  17. MAGMIN [Concomitant]
     Active Substance: MAGNESIUM ASPARTATE
  18. DIGOXIN. [Concomitant]
     Active Substance: DIGOXIN
  19. AMIODARONE [Suspect]
     Active Substance: AMIODARONE
     Route: 065
  20. BETAMIN [Concomitant]
  21. BICOR [BISOPROLOL FUMARATE] [Concomitant]
     Active Substance: BISOPROLOL FUMARATE
  22. PANADEINE FORTE [Concomitant]
     Active Substance: ACETAMINOPHEN\CODEINE PHOSPHATE
  23. SOTALOL HYDROCHLORIDE. [Suspect]
     Active Substance: SOTALOL HYDROCHLORIDE
     Route: 065
  24. ONDANSETRON [Suspect]
     Active Substance: ONDANSETRON
     Route: 065
  25. ATIVAN [Concomitant]
     Active Substance: LORAZEPAM
  26. POTASSIUM CHLORIDE. [Concomitant]
     Active Substance: POTASSIUM CHLORIDE
  27. ALLOPURINOL. [Concomitant]
     Active Substance: ALLOPURINOL
  28. CARTIA [Concomitant]
  29. PREGABALIN. [Concomitant]
     Active Substance: PREGABALIN

REACTIONS (43)
  - Ischaemic cardiomyopathy [Unknown]
  - Atrial flutter [Unknown]
  - Dyspnoea exertional [Unknown]
  - Ejection fraction abnormal [Unknown]
  - Neutrophilia [Unknown]
  - Weight decreased [Unknown]
  - Arterial occlusive disease [Unknown]
  - Bacterial infection [Unknown]
  - C-reactive protein decreased [Unknown]
  - Treatment failure [Unknown]
  - White blood cell count decreased [Unknown]
  - Cardiac failure [Unknown]
  - Renal impairment [Unknown]
  - Blood alkaline phosphatase increased [Unknown]
  - Ventricular tachycardia [Unknown]
  - Cardiac failure congestive [Unknown]
  - Left ventricular failure [Unknown]
  - Osteomyelitis [Unknown]
  - Asthenia [Unknown]
  - Blood pressure systolic decreased [Unknown]
  - Chest discomfort [Unknown]
  - Drug intolerance [Unknown]
  - Nausea [Unknown]
  - Back pain [Unknown]
  - Decreased appetite [Unknown]
  - Heart rate increased [Unknown]
  - International normalised ratio increased [Unknown]
  - Platelet count decreased [Unknown]
  - Right ventricular dysfunction [Unknown]
  - Mitral valve incompetence [Unknown]
  - Myocardial ischaemia [Unknown]
  - Back injury [Unknown]
  - Blood creatinine increased [Unknown]
  - Cough [Unknown]
  - Pain [Unknown]
  - Photosensitivity reaction [Unknown]
  - Cardiomegaly [Unknown]
  - Dizziness [Unknown]
  - Gamma-glutamyltransferase increased [Unknown]
  - Hypokinesia [Unknown]
  - Acne [Unknown]
  - Fluid overload [Unknown]
  - Malaise [Unknown]
